FAERS Safety Report 5938417-6 (Version None)
Quarter: 2008Q4

REPORT INFORMATION
  Report Type: 
  Country: None (occurrence: None)
  Receive Date: 20081103
  Receipt Date: 20081024
  Transmission Date: 20090506
  Serious: Yes (Hospitalization, Other)
  Sender: FDA-Public Use
  Company Number: US-PURDUE-USA_2008_0035591

PATIENT
  Sex: Female

DRUGS (2)
  1. DOCUSATE SODIUM [Concomitant]
     Indication: CONSTIPATION
     Dosage: 2 CAPSL, NOCTE
     Route: 048
  2. SENOKOT [Suspect]
     Indication: CONSTIPATION
     Dosage: 2 TABLET, DAILY
     Route: 048

REACTIONS (3)
  - DRUG INEFFECTIVE [None]
  - HOSPITALISATION [None]
  - INTESTINAL OBSTRUCTION [None]
